FAERS Safety Report 9216479 (Version 1)
Quarter: 2013Q2

REPORT INFORMATION
  Report Type: Spontaneous
  Country: GB (occurrence: None)
  Receive Date: 20130402
  Receipt Date: 20130402
  Transmission Date: 20140414
  Serious: Yes (Other)
  Sender: FDA-Public Use
  Company Number: AUR-APL-2013-02623

PATIENT
  Age: 60 Year
  Sex: Female
  Weight: 81 kg

DRUGS (9)
  1. FLUOXETINE (FLUOXETINE) [Suspect]
     Indication: DEPRESSION
     Route: 048
     Dates: start: 20120526, end: 20130304
  2. ATROPINE (ATROPINE) [Concomitant]
  3. CALCICHEW D3 (LEKOVIT CA) [Concomitant]
  4. CARDIOPLEN XL (FELODIPINE) [Concomitant]
  5. FROBEN (FLURBIPROFEN) [Concomitant]
  6. OMEPRAZOLE (OMEPRAZOLE) [Concomitant]
  7. SERTRALINE (SERTRALINE) (SERTRALINE) [Concomitant]
  8. STRONTIUM RANELATE (STRONTIUM RANELATE) [Concomitant]
  9. YELLOX (BROMFENAC) [Concomitant]

REACTIONS (2)
  - Iritis [None]
  - Uveitis [None]
